FAERS Safety Report 13363635 (Version 1)
Quarter: 2017Q1

REPORT INFORMATION
  Report Type: Report from Study
  Country: US (occurrence: US)
  Receive Date: 20170323
  Receipt Date: 20170323
  Transmission Date: 20170429
  Serious: Yes (Other)
  Sender: FDA-Public Use
  Company Number: US-AMGEN-USASL2017043612

PATIENT
  Sex: Female

DRUGS (2)
  1. ENBREL [Suspect]
     Active Substance: ETANERCEPT
     Indication: RHEUMATOID ARTHRITIS
     Dosage: UNK
     Route: 065
     Dates: start: 2005
  2. METHOTREXATE. [Concomitant]
     Active Substance: METHOTREXATE
     Dosage: UNK

REACTIONS (16)
  - Joint range of motion decreased [Unknown]
  - Grip strength decreased [Unknown]
  - Herpes zoster [Unknown]
  - Platelet disorder [Unknown]
  - Cataract [Unknown]
  - Dry mouth [Unknown]
  - Head and neck cancer [Unknown]
  - Visual impairment [Unknown]
  - Pain in extremity [Unknown]
  - Joint swelling [Unknown]
  - Eye disorder [Unknown]
  - Dysphagia [Unknown]
  - Weight decreased [Unknown]
  - White blood cell count abnormal [Unknown]
  - Candida infection [Recovered/Resolved]
  - Nodule [Unknown]

NARRATIVE: CASE EVENT DATE: 2007
